FAERS Safety Report 25565532 (Version 1)
Quarter: 2025Q3

REPORT INFORMATION
  Report Type: Spontaneous
  Country: GB (occurrence: GB)
  Receive Date: 20250716
  Receipt Date: 20250716
  Transmission Date: 20251021
  Serious: Yes (Other)
  Sender: AUROBINDO
  Company Number: GB-MHRA-TPP8149801C10637004YC1751361738805

PATIENT
  Age: 86 Year
  Sex: Female
  Weight: 48 kg

DRUGS (10)
  1. EZETIMIBE [Suspect]
     Active Substance: EZETIMIBE
     Indication: Product used for unknown indication
     Dosage: 10 MILLIGRAM, ONCE A DAY (TAKE ONE DAILY)
     Route: 065
     Dates: start: 20250513, end: 20250617
  2. CARBOHYDRATES\FATTY ACIDS\MINERALS\PROTEIN\VITAMINS [Concomitant]
     Active Substance: CARBOHYDRATES\FATTY ACIDS\MINERALS\PROTEIN\VITAMINS
     Indication: Ill-defined disorder
     Dosage: 1 DOSAGE FORM, 3 TIMES A DAY
     Route: 065
     Dates: start: 20250521
  3. ASPIRIN [Concomitant]
     Active Substance: ASPIRIN
     Indication: Ill-defined disorder
     Dosage: 1 DOSAGE FORM, ONCE A DAY
     Route: 065
     Dates: start: 20250207
  4. BECONASE AQ [Concomitant]
     Active Substance: BECLOMETHASONE DIPROPIONATE MONOHYDRATE
     Indication: Ill-defined disorder
     Dosage: 2 DOSAGE FORM, TWO TIMES A DAY
     Route: 065
     Dates: start: 20250207
  5. FOLIC ACID [Concomitant]
     Active Substance: FOLIC ACID
     Indication: Ill-defined disorder
     Route: 065
     Dates: start: 20250207
  6. HYDROXOCOBALAMIN [Concomitant]
     Active Substance: HYDROXOCOBALAMIN
     Indication: Ill-defined disorder
     Route: 065
     Dates: start: 20250207
  7. LEVOTHYROXINE [Concomitant]
     Active Substance: LEVOTHYROXINE
     Indication: Ill-defined disorder
     Route: 065
     Dates: start: 20250207
  8. PREGABALIN [Concomitant]
     Active Substance: PREGABALIN
     Indication: Ill-defined disorder
     Dosage: 1 DOSAGE FORM, TWO TIMES A DAY
     Route: 065
     Dates: start: 20250207
  9. VITAMINS [Concomitant]
     Active Substance: VITAMINS
     Indication: Ill-defined disorder
     Route: 065
     Dates: start: 20250207
  10. THIAMINE [Concomitant]
     Active Substance: THIAMINE
     Indication: Ill-defined disorder
     Route: 065
     Dates: start: 20250211

REACTIONS (3)
  - Faeces discoloured [Recovered/Resolved with Sequelae]
  - Malaise [Unknown]
  - Tremor [Unknown]

NARRATIVE: CASE EVENT DATE: 20250616
